FAERS Safety Report 15201149 (Version 2)
Quarter: 2018Q3

REPORT INFORMATION
  Report Type: Spontaneous
  Country: US (occurrence: US)
  Receive Date: 20180726
  Receipt Date: 20180907
  Transmission Date: 20181010
  Serious: No
  Sender: FDA-Public Use
  Company Number: US-PFIZER INC-2018297269

PATIENT
  Sex: Male

DRUGS (1)
  1. ADVIL LIQUI?GELS [Suspect]
     Active Substance: IBUPROFEN
     Dosage: UNK
     Dates: end: 20180723

REACTIONS (3)
  - Drug ineffective [Unknown]
  - Poor quality drug administered [Unknown]
  - Product physical issue [Unknown]
